FAERS Safety Report 22211249 (Version 1)
Quarter: 2023Q2

REPORT INFORMATION
  Report Type: Spontaneous
  Country: CN (occurrence: CN)
  Receive Date: 20230414
  Receipt Date: 20230414
  Transmission Date: 20230721
  Serious: Yes (Hospitalization, Other)
  Sender: FDA-Public Use
  Company Number: CN-Accord-308357

PATIENT
  Age: 101 Year
  Sex: Male

DRUGS (6)
  1. TIGECYCLINE [Suspect]
     Active Substance: TIGECYCLINE
     Indication: Pneumonia
  2. MEROPENEM [Suspect]
     Active Substance: MEROPENEM
     Indication: Pneumonia
  3. VANCOMYCIN [Suspect]
     Active Substance: VANCOMYCIN
     Indication: Pneumonia
  4. PIPERACILLIN AND TAZOBACTAM [Suspect]
     Active Substance: PIPERACILLIN SODIUM\TAZOBACTAM SODIUM
     Indication: Pneumonia
  5. FLOMOXEF [Concomitant]
     Active Substance: FLOMOXEF
     Indication: Pneumonia
     Dosage: RECEIVED ON DAY-1 AND RECEIVED ON DAY-2
  6. LEVOFLOXACIN [Concomitant]
     Active Substance: LEVOFLOXACIN
     Indication: Pneumonia
     Dosage: RECEIVED ON DAY-1 AND RECEIVED ON DAY-2

REACTIONS (3)
  - Pneumonia bacterial [Recovered/Resolved]
  - Drug resistance [Unknown]
  - Enterococcal infection [Recovered/Resolved]
